FAERS Safety Report 9249519 (Version 1)
Quarter: 2013Q2

REPORT INFORMATION
  Report Type: Spontaneous
  Country: US (occurrence: US)
  Receive Date: 20130423
  Receipt Date: 20130423
  Transmission Date: 20140414
  Serious: Yes (Other)
  Sender: FDA-Public Use
  Company Number: CHPA2013US006778

PATIENT
  Age: 70 Year
  Sex: Female

DRUGS (2)
  1. MAALOX ANTACID/ANTIGAS MAX QDTABS WILDB [Suspect]
     Indication: VOMITING
     Dosage: UNK DF, PRN
     Route: 048
     Dates: start: 1985
  2. MAALOX ANTACID/ANTIGAS MAX QDTABS WILDB [Suspect]
     Indication: DIARRHOEA

REACTIONS (7)
  - Cholelithiasis [Recovered/Resolved]
  - Vomiting [Recovering/Resolving]
  - Diarrhoea [Recovering/Resolving]
  - Constipation [Recovering/Resolving]
  - Feeling abnormal [Recovering/Resolving]
  - Therapeutic response unexpected [Unknown]
  - Off label use [Unknown]
